FAERS Safety Report 5045238-8 (Version None)
Quarter: 2006Q3

REPORT INFORMATION
  Report Type: 
  Country: None (occurrence: None)
  Receive Date: 20060707
  Receipt Date: 20060626
  Transmission Date: 20061208
  Serious: Yes (Other)
  Sender: FDA-Public Use
  Company Number: 2006AC01220

PATIENT
  Age: 36 Year
  Sex: Male
  Weight: 80 kg

DRUGS (4)
  1. ROPIVACAINE [Suspect]
     Indication: LOCAL ANAESTHESIA
     Dosage: 5 ML 1% ROPIVACAINE
     Route: 056
  2. PROPOFOL [Suspect]
     Indication: SEDATION
     Route: 042
  3. PROPOFOL [Suspect]
     Route: 042
  4. OXYBUPROCAINE [Concomitant]
     Dosage: 0.4 %
     Route: 047

REACTIONS (5)
  - CONVULSION [None]
  - FACIAL PALSY [None]
  - HEMIPARESIS [None]
  - INCORRECT ROUTE OF DRUG ADMINISTRATION [None]
  - OBSTRUCTIVE AIRWAYS DISORDER [None]
